FAERS Safety Report 11790012 (Version 1)
Quarter: 2015Q4

REPORT INFORMATION
  Report Type: Spontaneous
  Country: US (occurrence: US)
  Receive Date: 20151201
  Receipt Date: 20151201
  Transmission Date: 20160305
  Serious: Yes (Other)
  Sender: FDA-Public Use
  Company Number: US-PFIZER INC-2015399337

PATIENT
  Age: 67 Year
  Sex: Female
  Weight: 72.11 kg

DRUGS (4)
  1. NAMENDA [Concomitant]
     Active Substance: MEMANTINE HYDROCHLORIDE
     Indication: ANTICOAGULANT THERAPY
  2. GABAPENTIN. [Suspect]
     Active Substance: GABAPENTIN
     Dosage: UNK
  3. LYRICA [Suspect]
     Active Substance: PREGABALIN
     Indication: NERVE INJURY
     Dosage: 100 MG, 4X/DAY
  4. NAMENDA [Concomitant]
     Active Substance: MEMANTINE HYDROCHLORIDE
     Indication: PROPHYLAXIS
     Dosage: UNK (10 MG OR 20 MG)

REACTIONS (6)
  - Cardiac disorder [Unknown]
  - Nerve injury [Unknown]
  - Atrial fibrillation [Unknown]
  - Memory impairment [Unknown]
  - Head injury [Unknown]
  - Overweight [Unknown]
